FAERS Safety Report 19837956 (Version 6)
Quarter: 2021Q4

REPORT INFORMATION
  Report Type: Report from Study
  Country: DE (occurrence: DE)
  Receive Date: 20210916
  Receipt Date: 20211109
  Transmission Date: 20220303
  Serious: Yes (Death, Hospitalization, Other)
  Sender: FDA-Public Use
  Company Number: DE-ABBVIE-21K-062-3898546-00

PATIENT
  Sex: Male

DRUGS (19)
  1. CARBIDOPA\LEVODOPA [Suspect]
     Active Substance: CARBIDOPA\LEVODOPA
     Indication: Parkinson^s disease
     Dosage: MD 6.0 ML; CRD 6.2 ML/H; CRN 5.2 ML/H; ED 3.5 ML
     Route: 050
     Dates: start: 20200318, end: 2021
  2. CARBIDOPA\LEVODOPA [Suspect]
     Active Substance: CARBIDOPA\LEVODOPA
     Dosage: MD 6.0 ML; CRD 6.4 ML/H; CRN 5.4 ML/H; ED 3.5 ML
     Route: 050
     Dates: start: 2021, end: 2021
  3. CARBIDOPA\LEVODOPA [Suspect]
     Active Substance: CARBIDOPA\LEVODOPA
     Dosage: MD 6 ML; CRD 6.7 ML/H; CRN 5.4 ML/H; ED 3.5 ML
     Route: 050
     Dates: start: 2021, end: 2021
  4. CARBIDOPA\LEVODOPA [Suspect]
     Active Substance: CARBIDOPA\LEVODOPA
     Dosage: MD 6 ML; CRD 7.6 ML/H; CRN 5.4 ML/H; ED 3 ML
     Route: 050
     Dates: start: 2021, end: 20210910
  5. CARBIDOPA\LEVODOPA [Suspect]
     Active Substance: CARBIDOPA\LEVODOPA
     Dosage: MD 6 ML; CRD 7.2 ML/H; CRN 5.4 ML/H; ED 3 ML
     Route: 050
     Dates: start: 20210910, end: 202109
  6. CARBIDOPA\LEVODOPA [Suspect]
     Active Substance: CARBIDOPA\LEVODOPA
     Dosage: MD 4 ML; CRD 5.0 ML/H; CRN 4.5 ML/H; ED 3 ML
     Route: 050
     Dates: start: 202109, end: 20210930
  7. CARBIDOPA\LEVODOPA [Suspect]
     Active Substance: CARBIDOPA\LEVODOPA
     Dosage: MD 5.0 ML; CRD 2.2 ML; ED 2.0 ML
     Route: 050
     Dates: start: 20211006
  8. QUETIAPINE [Concomitant]
     Active Substance: QUETIAPINE
     Indication: Product used for unknown indication
  9. MIRTAZAPINE [Concomitant]
     Active Substance: MIRTAZAPINE
     Indication: Product used for unknown indication
  10. VENLAFAXINE HYDROCHLORIDE [Concomitant]
     Active Substance: VENLAFAXINE HYDROCHLORIDE
     Indication: Product used for unknown indication
  11. RIVOTRIL [Concomitant]
     Active Substance: CLONAZEPAM
     Indication: Product used for unknown indication
  12. LEVOTHYROXINE SODIUM [Concomitant]
     Active Substance: LEVOTHYROXINE SODIUM
     Indication: Product used for unknown indication
  13. ENOXAPARIN SODIUM [Concomitant]
     Active Substance: ENOXAPARIN SODIUM
     Indication: Product used for unknown indication
  14. CLOPIDOGREL [Concomitant]
     Active Substance: CLOPIDOGREL BISULFATE
     Indication: Product used for unknown indication
  15. MAGNESIUM [Concomitant]
     Active Substance: MAGNESIUM
     Indication: Product used for unknown indication
  16. TAMSULOSIN [Concomitant]
     Active Substance: TAMSULOSIN
     Indication: Product used for unknown indication
  17. PREGABALIN [Concomitant]
     Active Substance: PREGABALIN
     Indication: Product used for unknown indication
  18. METOPROLOL [Concomitant]
     Active Substance: METOPROLOL
     Indication: Product used for unknown indication
  19. HYDROMORPHONE [Concomitant]
     Active Substance: HYDROMORPHONE
     Indication: Product used for unknown indication

REACTIONS (10)
  - Escherichia sepsis [Fatal]
  - Restlessness [Recovered/Resolved]
  - Akinesia [Not Recovered/Not Resolved]
  - Hallucination [Recovered/Resolved]
  - Hyperhidrosis [Not Recovered/Not Resolved]
  - Wrong technique in device usage process [Recovered/Resolved]
  - Sputum discoloured [Not Recovered/Not Resolved]
  - Hyperkinesia [Recovered/Resolved]
  - Pyrexia [Not Recovered/Not Resolved]
  - Device issue [Unknown]

NARRATIVE: CASE EVENT DATE: 20210101
